FAERS Safety Report 9911511 (Version 1)
Quarter: 2014Q1

REPORT INFORMATION
  Report Type: Spontaneous
  Country: US (occurrence: US)
  Receive Date: 20140219
  Receipt Date: 20140219
  Transmission Date: 20141002
  Serious: Yes (Other)
  Sender: FDA-Public Use
  Company Number: PHHY2014US018535

PATIENT
  Age: 55 Year
  Sex: Male

DRUGS (5)
  1. CICLOSPORIN [Suspect]
     Indication: IMMUNOSUPPRESSION
  2. MYCOPHENOLIC ACID [Suspect]
     Indication: IMMUNOSUPPRESSION
  3. TEMSIROLIMUS [Concomitant]
     Dosage: 25 MG, PER WEEK
  4. SIROLIMUS [Concomitant]
     Dosage: 2 MG, PER DAY
  5. PREDNISONE [Concomitant]
     Dosage: 15 MG, PER DAY

REACTIONS (3)
  - Humerus fracture [Unknown]
  - Metastasis [Recovering/Resolving]
  - Pulmonary mass [Recovering/Resolving]
